FAERS Safety Report 23646906 (Version 1)
Quarter: 2024Q1

REPORT INFORMATION
  Report Type: Spontaneous
  Country: US (occurrence: US)
  Receive Date: 20240319
  Receipt Date: 20240319
  Transmission Date: 20240410
  Serious: Yes (Death, Other)
  Sender: FDA-Public Use
  Company Number: US-AMGEN-USASP2024052416

PATIENT

DRUGS (9)
  1. CARFILZOMIB [Suspect]
     Active Substance: CARFILZOMIB
     Indication: Plasma cell myeloma
     Dosage: 20/36 MG/M 2 ON DAYS 1, 2, 8, 9, 15, 16 FOR C1-8,
     Route: 065
  2. CARFILZOMIB [Suspect]
     Active Substance: CARFILZOMIB
     Dosage: 36 MILLIGRAM/SQ. METER,  ON DAYS 1, 2, 15, 16 FOR C9-24
     Route: 065
  3. DARATUMUMAB [Suspect]
     Active Substance: DARATUMUMAB
     Indication: Plasma cell myeloma
     Dosage: 16 MILLIGRAM/KILOGRAM, QWK,  FOR CYCLES (C) 1 + 2
     Route: 042
  4. DARATUMUMAB [Suspect]
     Active Substance: DARATUMUMAB
     Dosage: 16 MILLIGRAM/KILOGRAM, Q2WK, FOR C3-8
     Route: 042
  5. DARATUMUMAB [Suspect]
     Active Substance: DARATUMUMAB
     Dosage: 16 MILLIGRAM/KILOGRAM, Q4WK,  FOR C9-24
     Route: 042
  6. LENALIDOMIDE [Suspect]
     Active Substance: LENALIDOMIDE
     Indication: Plasma cell myeloma
     Dosage: 25 MILLIGRAM, DAYS 1-21 OF A 28 DAY CYCLE FOR 24 CYCLES
     Route: 048
  7. DEXAMETHASONE [Suspect]
     Active Substance: DEXAMETHASONE
     Indication: Plasma cell myeloma
     Dosage: 40 MILLIGRAM, QWK ((20 MG IF AGE } 75) FOR C1 -9)
     Route: 048
  8. DEXAMETHASONE [Suspect]
     Active Substance: DEXAMETHASONE
     Dosage: 20 MILLIGRAM, QWK ,  FOR C9-24.
     Route: 048
  9. PLERIXAFOR [Concomitant]
     Active Substance: PLERIXAFOR

REACTIONS (16)
  - COVID-19 [Unknown]
  - Plasma cell myeloma refractory [Fatal]
  - Plasma cell myeloma [Fatal]
  - Neutropenia [Unknown]
  - Anaemia [Unknown]
  - Thrombocytopenia [Unknown]
  - Hyperglycaemia [Unknown]
  - Diarrhoea [Unknown]
  - Hypertension [Unknown]
  - Neuropathy peripheral [Unknown]
  - Thrombotic microangiopathy [Unknown]
  - Atrial fibrillation [Unknown]
  - Cardiac failure [Unknown]
  - Therapeutic product effect decreased [Unknown]
  - Upper respiratory tract infection [Unknown]
  - Off label use [Unknown]
